FAERS Safety Report 9560863 (Version 3)
Quarter: 2014Q1

REPORT INFORMATION
  Report Type: Spontaneous
  Country: GB (occurrence: None)
  Receive Date: 20130925
  Receipt Date: 20140128
  Transmission Date: 20141002
  Serious: Yes (Other)
  Sender: FDA-Public Use
  Company Number: AUR-APL-2013-07728

PATIENT
  Age: 51 Year
  Sex: Male

DRUGS (3)
  1. RIBAVIRIN [Suspect]
     Indication: HEPATITIS C
     Route: 048
     Dates: start: 20121111
  2. TELAPREVIR [Suspect]
     Indication: HEPATITIS C
     Dosage: 2250 MG (750 MG, 3 IN 1 D), ORAL
     Dates: start: 20121111
  3. PEGINTERFERON ALFA-2B [Suspect]
     Indication: HEPATITIS C
     Route: 058
     Dates: start: 20121111

REACTIONS (10)
  - Influenza [None]
  - Anaemia [None]
  - Rash [None]
  - Rash [None]
  - Fatigue [None]
  - Headache [None]
  - Skin irritation [None]
  - Adverse drug reaction [None]
  - Haemorrhoids [None]
  - Pruritus [None]
